FAERS Safety Report 12936931 (Version 3)
Quarter: 2016Q4

REPORT INFORMATION
  Report Type: Report from Study
  Country: US (occurrence: US)
  Receive Date: 20161114
  Receipt Date: 20161220
  Transmission Date: 20170207
  Serious: Yes (Death, Hospitalization, Other)
  Sender: FDA-Public Use
  Company Number: US-GILEAD-2016-0243031

PATIENT
  Age: 83 Year
  Sex: Male

DRUGS (3)
  1. REVATIO [Concomitant]
     Active Substance: SILDENAFIL CITRATE
  2. AMBRISENTAN [Suspect]
     Active Substance: AMBRISENTAN
     Indication: PRODUCT USED FOR UNKNOWN INDICATION
     Dosage: 10 MG, QD
     Route: 065
     Dates: start: 20120228
  3. OXYGEN. [Concomitant]
     Active Substance: OXYGEN

REACTIONS (6)
  - Cyanosis [Unknown]
  - Dizziness [Unknown]
  - Pneumonia [Unknown]
  - Chronic obstructive pulmonary disease [Unknown]
  - Oxygen consumption increased [Unknown]
  - Death [Fatal]

NARRATIVE: CASE EVENT DATE: 20161113
